FAERS Safety Report 23874019 (Version 1)
Quarter: 2024Q2

REPORT INFORMATION
  Report Type: Spontaneous
  Country: US (occurrence: None)
  Receive Date: 20240517
  Receipt Date: 20240517
  Transmission Date: 20240715
  Serious: Yes (Other)
  Sender: FDA-Public Use
  Company Number: None

PATIENT
  Age: 40 Year
  Sex: Female
  Weight: 100.35 kg

DRUGS (2)
  1. VENOFER [Suspect]
     Active Substance: IRON SUCROSE
     Indication: Iron deficiency anaemia
     Dates: start: 20240515, end: 20240516
  2. Labetalole [Concomitant]

REACTIONS (7)
  - Infusion related reaction [None]
  - Chest pain [None]
  - Lethargy [None]
  - Vaginal haemorrhage [None]
  - Uterine pain [None]
  - Legal problem [None]
  - Victim of crime [None]

NARRATIVE: CASE EVENT DATE: 20240515
